FAERS Safety Report 7370241-2 (Version None)
Quarter: 2011Q1

REPORT INFORMATION
  Report Type: 
  Country: None (occurrence: None)
  Receive Date: 20110323
  Receipt Date: 20110311
  Transmission Date: 20110831
  Serious: No
  Sender: FDA-Public Use
  Company Number: PHHY2010BR53085

PATIENT
  Sex: Male

DRUGS (1)
  1. DIOVAN HCT [Suspect]
     Indication: DEVICE RELATED INFECTION
     Dosage: 320/12.5 MG, UNK

REACTIONS (1)
  - NO ADVERSE EVENT [None]
